FAERS Safety Report 5410566-0 (Version None)
Quarter: 2007Q3

REPORT INFORMATION
  Report Type: 
  Country: None (occurrence: None)
  Receive Date: 20070810
  Receipt Date: 20070314
  Transmission Date: 20080115
  Serious: No
  Sender: FDA-Public Use
  Company Number: A0643215A

PATIENT
  Age: 57 Year
  Sex: Female

DRUGS (5)
  1. PAXIL [Suspect]
     Indication: DRUG USE FOR UNKNOWN INDICATION
     Route: 048
     Dates: start: 20020101
  2. PAXIL CR [Suspect]
     Indication: DRUG USE FOR UNKNOWN INDICATION
     Dosage: 25MG PER DAY
     Route: 048
     Dates: start: 20050101
  3. LISINOPRIL [Concomitant]
  4. CRESTOR [Concomitant]
  5. METFORMIN HCL [Concomitant]

REACTIONS (5)
  - DIARRHOEA [None]
  - DRY MOUTH [None]
  - INSOMNIA [None]
  - NAUSEA [None]
  - TREMOR [None]
